FAERS Safety Report 5186485-4 (Version None)
Quarter: 2006Q4

REPORT INFORMATION
  Report Type: 
  Country: None (occurrence: None)
  Receive Date: 20061220
  Receipt Date: 20051129
  Transmission Date: 20070319
  Serious: Yes (Death, Hospitalization)
  Sender: FDA-Public Use
  Company Number: GB-ELI_LILLY_AND_COMPANY-GB200511003029

PATIENT
  Age: 68 Year
  Sex: Male
  Weight: 96.3 kg

DRUGS (14)
  1. PEMETREXED [Suspect]
     Indication: NON-SMALL CELL LUNG CANCER
     Dosage: 1890 MG, OTHER
     Route: 042
     Dates: start: 20051010, end: 20051010
  2. PEMETREXED [Suspect]
     Dosage: 945 MG, OTHER
     Route: 042
     Dates: start: 20051031, end: 20051031
  3. FOLIC ACID [Concomitant]
     Indication: PROPHYLAXIS
     Dosage: 400 UG, DAILY (1/D)
     Route: 048
     Dates: start: 20051003
  4. VITAMIN B-12 [Concomitant]
     Indication: PROPHYLAXIS
     Dosage: 1000 UG, OTHER
     Route: 030
     Dates: start: 20051003
  5. DILTIAZEM HCL [Concomitant]
     Indication: MYOCARDIAL INFARCTION
     Dosage: UNK, UNK
  6. NICORANDIL [Concomitant]
     Indication: ANGINA PECTORIS
     Dates: start: 20050101
  7. ALLOPURINOL [Concomitant]
     Dosage: UNK, UNK
  8. WARFARIN SODIUM [Concomitant]
     Indication: ATRIAL FIBRILLATION
     Dosage: UNK, UNK
  9. FLUVASTATIN [Concomitant]
     Indication: MYOCARDIAL INFARCTION
     Dosage: UNK, UNK
  10. ACETAMINOPHEN [Concomitant]
  11. DEXAMETHASONE [Concomitant]
     Indication: LYMPHANGITIS
     Dates: start: 20051114
  12. DIPROBASE CREAM [Concomitant]
     Dosage: UNK, UNK
  13. NYSTATIN [Concomitant]
     Dosage: UNK, UNK
  14. LANSOPRAZOLE [Concomitant]
     Indication: PROPHYLAXIS
     Dosage: UNK, UNK

REACTIONS (10)
  - FLATULENCE [None]
  - GENERAL PHYSICAL HEALTH DETERIORATION [None]
  - INTERNATIONAL NORMALISED RATIO INCREASED [None]
  - INTESTINAL DILATATION [None]
  - INTESTINAL PERFORATION [None]
  - NEUTROPHIL PERCENTAGE DECREASED [None]
  - PERITONITIS [None]
  - PLATELET COUNT DECREASED [None]
  - RECTAL HAEMORRHAGE [None]
  - WHITE BLOOD CELL COUNT INCREASED [None]
